FAERS Safety Report 18923788 (Version 2)
Quarter: 2021Q2

REPORT INFORMATION
  Report Type: Report from Study
  Country: US (occurrence: US)
  Receive Date: 20210222
  Receipt Date: 20210406
  Transmission Date: 20210717
  Serious: Yes (Hospitalization)
  Sender: FDA-Public Use
  Company Number: US-JNJFOC-20210228290

PATIENT
  Age: 57 Year
  Sex: Male
  Weight: 81.8 kg

DRUGS (1)
  1. SELEXIPAG [Suspect]
     Active Substance: SELEXIPAG
     Indication: PULMONARY HYPERTENSION
     Route: 048

REACTIONS (2)
  - Clostridium difficile infection [Unknown]
  - Toothache [Unknown]

NARRATIVE: CASE EVENT DATE: 20210213
